FAERS Safety Report 18904092 (Version 2)
Quarter: 2021Q2

REPORT INFORMATION
  Report Type: Report from Study
  Country: US (occurrence: US)
  Receive Date: 20210217
  Receipt Date: 20210404
  Transmission Date: 20210717
  Serious: No
  Sender: FDA-Public Use
  Company Number: NVSC2021US030098

PATIENT
  Sex: Female

DRUGS (1)
  1. COSENTYX [Suspect]
     Active Substance: SECUKINUMAB
     Indication: PSORIATIC ARTHROPATHY
     Dosage: 150 MG, QMO (BENEATH THE SKIN USUALLY VIA SKIN)
     Route: 058

REACTIONS (4)
  - Product dose omission issue [Unknown]
  - Accident [Unknown]
  - Impaired healing [Unknown]
  - Limb injury [Unknown]

NARRATIVE: CASE EVENT DATE: 2019
